FAERS Safety Report 16083329 (Version 1)
Quarter: 2019Q1

REPORT INFORMATION
  Report Type: Spontaneous
  Country: HR (occurrence: HR)
  Receive Date: 20190318
  Receipt Date: 20190318
  Transmission Date: 20190418
  Serious: Yes (Death)
  Sender: FDA-Public Use
  Company Number: HR-TEVA-2019-HR-1024553

PATIENT
  Age: 72 Year
  Sex: Female

DRUGS (1)
  1. TEMAZOLAMIDE [Suspect]
     Active Substance: TEMOZOLOMIDE
     Indication: GLIOBLASTOMA
     Dosage: 135 MILLIGRAM DAILY;
     Route: 048
     Dates: start: 20190118, end: 20190128

REACTIONS (6)
  - Neutropenia [Fatal]
  - Haemorrhagic diathesis [Fatal]
  - Pneumonia [Fatal]
  - White blood cell count decreased [Fatal]
  - Pyrexia [Fatal]
  - Platelet count decreased [Fatal]

NARRATIVE: CASE EVENT DATE: 20190128
